FAERS Safety Report 12171696 (Version 1)
Quarter: 2016Q1

REPORT INFORMATION
  Report Type: Spontaneous
  Country: FR (occurrence: FR)
  Receive Date: 20160311
  Receipt Date: 20160311
  Transmission Date: 20160526
  Serious: Yes (Other)
  Sender: FDA-Public Use
  Company Number: FR-PFIZER INC-2016149311

PATIENT
  Age: 83 Year
  Sex: Female

DRUGS (2)
  1. COTAREG [Concomitant]
     Active Substance: HYDROCHLOROTHIAZIDE\VALSARTAN
     Dosage: UNK
     Dates: start: 20151009
  2. CORDARONE [Suspect]
     Active Substance: AMIODARONE HYDROCHLORIDE
     Indication: ATRIAL FIBRILLATION
     Dosage: 200 MG, DAILY
     Route: 048
     Dates: start: 20150718, end: 20151009

REACTIONS (2)
  - Hypothyroidism [Not Recovered/Not Resolved]
  - Hypertensive cardiomyopathy [Unknown]

NARRATIVE: CASE EVENT DATE: 20151012
